FAERS Safety Report 23040400 (Version 1)
Quarter: 2023Q4

REPORT INFORMATION
  Report Type: Spontaneous
  Country: US (occurrence: None)
  Receive Date: 20231006
  Receipt Date: 20231006
  Transmission Date: 20240110
  Serious: Yes (Other)
  Sender: FDA-Public Use
  Company Number: None

PATIENT
  Age: 63 Year
  Sex: Female
  Weight: 96.75 kg

DRUGS (15)
  1. SULFAMETHOXAZOLE\TRIMETHOPRIM [Suspect]
     Active Substance: SULFAMETHOXAZOLE\TRIMETHOPRIM
     Indication: Urinary tract infection
     Dosage: OTHER QUANTITY : 1 CAPSULE(S);?FREQUENCY : DAILY;?
     Route: 048
  2. SULFAMETHOXAZOLE\TRIMETHOPRIM [Suspect]
     Active Substance: SULFAMETHOXAZOLE\TRIMETHOPRIM
     Indication: Pathogen resistance
  3. SULFAMETHOXAZOLE\TRIMETHOPRIM [Suspect]
     Active Substance: SULFAMETHOXAZOLE\TRIMETHOPRIM
     Indication: Cystitis bacterial
  4. GABAPENTIN [Concomitant]
     Active Substance: GABAPENTIN
  5. ACYCLOVIR [Concomitant]
     Active Substance: ACYCLOVIR
  6. HYDROXYCHLOROQUINE [Concomitant]
     Active Substance: HYDROXYCHLOROQUINE
  7. PREGABALIN [Concomitant]
     Active Substance: PREGABALIN
  8. XYZAL [Concomitant]
     Active Substance: LEVOCETIRIZINE DIHYDROCHLORIDE
  9. SINGULAIR [Concomitant]
     Active Substance: MONTELUKAST SODIUM
  10. pantopropozole [Concomitant]
  11. ASPIRIN [Concomitant]
     Active Substance: ASPIRIN
  12. VITAMIN D3 [Concomitant]
     Active Substance: CHOLECALCIFEROL
  13. METAMUCIL [Concomitant]
     Active Substance: PLANTAGO SEED
  14. PROBIOTICS NOS [Concomitant]
     Active Substance: PROBIOTICS NOS
  15. prebiotics [Concomitant]

REACTIONS (8)
  - Flushing [None]
  - Erythema [None]
  - Skin burning sensation [None]
  - Systemic lupus erythematosus [None]
  - Cough [None]
  - Contraindicated product prescribed [None]
  - Therapy interrupted [None]
  - Drug ineffective [None]

NARRATIVE: CASE EVENT DATE: 20230904
